FAERS Safety Report 8167293-9 (Version None)
Quarter: 2012Q1

REPORT INFORMATION
  Report Type: 
  Country: None (occurrence: None)
  Receive Date: 20120227
  Receipt Date: 20120223
  Transmission Date: 20120608
  Serious: Yes (Other)
  Sender: FDA-Public Use
  Company Number: JP-PFIZER INC-2012047712

PATIENT
  Sex: Male

DRUGS (1)
  1. VARENICLINE TARTRATE [Suspect]
     Indication: NICOTINE DEPENDENCE
     Dosage: 1 MG, 2X/DAY
     Route: 044
     Dates: start: 20120202

REACTIONS (5)
  - LARYNGEAL OEDEMA [None]
  - COUGH [None]
  - DYSPNOEA [None]
  - TRACHEAL OBSTRUCTION [None]
  - PHARYNGEAL OEDEMA [None]
